FAERS Safety Report 13841975 (Version 1)
Quarter: 2017Q3

REPORT INFORMATION
  Report Type: Spontaneous
  Country: US (occurrence: US)
  Receive Date: 20170807
  Receipt Date: 20170807
  Transmission Date: 20171127
  Serious: No
  Sender: FDA-Public Use
  Company Number: US-AMGEN-USASP2017060777

PATIENT
  Age: 64 Year
  Sex: Female
  Weight: 105.67 kg

DRUGS (12)
  1. LASIX [Concomitant]
     Active Substance: FUROSEMIDE
     Dosage: 20 MG, QD
     Route: 048
  2. LYRICA [Concomitant]
     Active Substance: PREGABALIN
     Dosage: 75 MG, BID
     Route: 048
  3. KLOR-CON [Concomitant]
     Active Substance: POTASSIUM CHLORIDE
     Dosage: 20 MG, QD
     Route: 048
  4. NEXIUM [Concomitant]
     Active Substance: ESOMEPRAZOLE MAGNESIUM
     Dosage: 40 MG, QD
     Route: 048
  5. NORTRIPTYLINE [Concomitant]
     Active Substance: NORTRIPTYLINE
  6. XANAX [Concomitant]
     Active Substance: ALPRAZOLAM
  7. METFORMIN [Concomitant]
     Active Substance: METFORMIN HYDROCHLORIDE
     Dosage: 500 MG, QD
     Route: 048
  8. NPLATE [Suspect]
     Active Substance: ROMIPLOSTIM
     Indication: IMMUNE THROMBOCYTOPENIC PURPURA
     Dosage: 615 MCG, QWK
     Route: 058
     Dates: start: 20130124
  9. NPLATE [Suspect]
     Active Substance: ROMIPLOSTIM
     Dosage: 1027 MCG, QWK
     Route: 058
  10. VERAPAMIL [Concomitant]
     Active Substance: VERAPAMIL HYDROCHLORIDE
  11. NPLATE [Suspect]
     Active Substance: ROMIPLOSTIM
     Dosage: 822 MCG, UNK
     Route: 058
  12. NPLATE [Suspect]
     Active Substance: ROMIPLOSTIM
     Dosage: 10 MCG, UNK
     Route: 058
     Dates: start: 20150225

REACTIONS (1)
  - Platelet count decreased [Recovering/Resolving]

NARRATIVE: CASE EVENT DATE: 20170315
